FAERS Safety Report 6423500-1 (Version None)
Quarter: 2009Q4

REPORT INFORMATION
  Report Type: 
  Country: None (occurrence: None)
  Receive Date: 20091102
  Receipt Date: 20091023
  Transmission Date: 20100525
  Serious: Yes (Hospitalization, Other)
  Sender: FDA-Public Use
  Company Number: DE-JNJFOC-20081105471

PATIENT
  Age: 48 Year
  Sex: Male

DRUGS (12)
  1. REMICADE [Suspect]
     Indication: PSORIATIC ARTHROPATHY
     Route: 042
     Dates: start: 20080701
  2. RAPTIVA [Suspect]
     Indication: DRUG USE FOR UNKNOWN INDICATION
  3. IBUPROPHEN [Concomitant]
  4. METHOTREXATE [Concomitant]
  5. METHOTREXATE [Concomitant]
     Indication: PSORIATIC ARTHROPATHY
  6. PREDNISOLONE [Concomitant]
     Dosage: 5-20 MG
  7. PREDNISOLONE [Concomitant]
     Indication: PSORIATIC ARTHROPATHY
     Dosage: 5-10 MILLIGRAMS
  8. CIGNOLIN [Concomitant]
     Route: 061
  9. CLOBETASOL PROPIONATE [Concomitant]
  10. BETAMETHASONE [Concomitant]
  11. NEXIUM [Concomitant]
  12. KATADOLON [Concomitant]

REACTIONS (1)
  - NON-HODGKIN'S LYMPHOMA [None]
